FAERS Safety Report 23464385 (Version 2)
Quarter: 2024Q1

REPORT INFORMATION
  Report Type: Spontaneous
  Country: JP (occurrence: JP)
  Receive Date: 20240201
  Receipt Date: 20240209
  Transmission Date: 20240409
  Serious: Yes (Death, Other)
  Sender: FDA-Public Use
  Company Number: JP-ONO-2024JP001520

PATIENT

DRUGS (8)
  1. OPDIVO [Suspect]
     Active Substance: NIVOLUMAB
     Indication: Gastric cancer
     Dosage: UNK
     Route: 041
  2. PREDNISOLONE [Suspect]
     Active Substance: PREDNISOLONE
     Indication: Pneumonia
     Dosage: REDUCED BY 5 MG IN LESS THAN 1 WEEK (IN SEVERAL DAYS [EVERY 3-4DAYS]).
  3. PREDNISOLONE [Suspect]
     Active Substance: PREDNISOLONE
     Dosage: DOSE REDUCED.
  4. PREDNISOLONE [Suspect]
     Active Substance: PREDNISOLONE
     Dosage: PERFORMED FOR THE 2ND TIME
  5. PREDNISOLONE [Suspect]
     Active Substance: PREDNISOLONE
     Dosage: PERFORMED FOR THE 3RD TIME
  6. PREDNISOLONE [Suspect]
     Active Substance: PREDNISOLONE
  7. GIMERACIL\OTERACIL\TEGAFUR [Concomitant]
     Active Substance: GIMERACIL\OTERACIL POTASSIUM\TEGAFUR
     Indication: Gastric cancer
     Dosage: UNK
  8. OXALIPLATIN [Concomitant]
     Active Substance: OXALIPLATIN
     Indication: Gastric cancer
     Dosage: UNK

REACTIONS (5)
  - Cytomegalovirus oesophagitis [Fatal]
  - Haematemesis [Fatal]
  - Cytomegalovirus infection reactivation [Unknown]
  - Immune-mediated lung disease [Unknown]
  - Depressed level of consciousness [Unknown]
